FAERS Safety Report 14494330 (Version 2)
Quarter: 2018Q1

REPORT INFORMATION
  Report Type: Report from Study
  Country: GB (occurrence: GB)
  Receive Date: 20180206
  Receipt Date: 20180216
  Transmission Date: 20180509
  Serious: Yes (Hospitalization)
  Sender: FDA-Public Use
  Company Number: GB-PFIZER INC-2018037771

PATIENT
  Age: 73 Year
  Sex: Female
  Weight: 54 kg

DRUGS (16)
  1. CYCLOPHOSPHAMIDE. [Concomitant]
     Active Substance: CYCLOPHOSPHAMIDE
     Indication: DIFFUSE LARGE B-CELL LYMPHOMA
     Dosage: 1200 MG, CYCLIC (D1 EACH CYCLE)
     Route: 042
     Dates: start: 20171128, end: 20171219
  2. PARACETAMOL [Concomitant]
     Active Substance: ACETAMINOPHEN
     Indication: DIFFUSE LARGE B-CELL LYMPHOMA
     Dosage: 2 G, D1 EACH + 2 CYCLE
     Dates: start: 20171128, end: 20171219
  3. NYSTATIN. [Concomitant]
     Active Substance: NYSTATIN
     Indication: PROPHYLAXIS
     Dosage: 1 ML, 4X/DAY
     Route: 048
     Dates: start: 20171127
  4. VINCRISTINE [Concomitant]
     Active Substance: VINCRISTINE
     Indication: DIFFUSE LARGE B-CELL LYMPHOMA
     Dosage: 2 MG, CYCLIC (D1 EACH CYCLE)
     Route: 042
     Dates: start: 20171128, end: 20171219
  5. PREDNISOLONE. [Concomitant]
     Active Substance: PREDNISOLONE
     Indication: DIFFUSE LARGE B-CELL LYMPHOMA
     Dosage: 500 MG,  PRE TREAT D1-5 EACH COURSE WEANING
     Route: 048
     Dates: start: 20171117, end: 20171223
  6. ACICLOVIR [Concomitant]
     Active Substance: ACYCLOVIR
     Indication: ANTIFUNGAL PROPHYLAXIS
     Dosage: 400 MG, 2X/DAY
     Route: 048
     Dates: start: 20171128
  7. FILGRASTIM [Concomitant]
     Active Substance: FILGRASTIM
     Indication: BLOOD GROWTH HORMONE
     Dosage: 300 UG, DAY 04-12 EACH COURSE
     Route: 058
     Dates: start: 20171130, end: 20171230
  8. ONDANSETRON [Concomitant]
     Active Substance: ONDANSETRON
     Indication: MALAISE
     Dosage: 8 MG, CYCLIC (DAY 1 EACH CYCLE)
     Route: 048
     Dates: start: 20171128, end: 20171219
  9. ONDANSETRON [Concomitant]
     Active Substance: ONDANSETRON
     Indication: NAUSEA
     Dosage: 8 MG, DAILY AS NEEDED
     Route: 048
     Dates: start: 20171220
  10. COTRIMOXAZOLE [Concomitant]
     Active Substance: SULFAMETHOXAZOLE\TRIMETHOPRIM
     Indication: INFECTION PROPHYLAXIS
     Dosage: 480 MG, 3 X PER WEEK
     Route: 048
     Dates: start: 20171127
  11. METHOTREXATE. [Concomitant]
     Active Substance: METHOTREXATE
     Indication: PROPHYLAXIS
     Dosage: 12 MG, ONCE
     Dates: start: 20171130, end: 20171130
  12. INOTUZUMAB OZOGAMICIN [Suspect]
     Active Substance: INOTUZUMAB OZOGAMICIN
     Indication: DIFFUSE LARGE B-CELL LYMPHOMA
     Dosage: 1.2 MG, CYCLIC (DAY 2 EACH CYCLE)
     Route: 042
     Dates: start: 20171129, end: 20171220
  13. RITUXIMAB. [Concomitant]
     Active Substance: RITUXIMAB
     Indication: DIFFUSE LARGE B-CELL LYMPHOMA
     Dosage: 580 MG, CYCLIC (D1 EACH CYCLE)
     Route: 042
     Dates: start: 20171128, end: 20171219
  14. OMEPRAZOLE. [Concomitant]
     Active Substance: OMEPRAZOLE
     Indication: PROPHYLAXIS
     Dosage: 20 MG, 1X/DAY
     Route: 048
     Dates: start: 20171128
  15. CHLORHEXIDIN MYBACIN MOUTHWASH [Concomitant]
     Indication: PROPHYLAXIS
     Dosage: 40 ML, 4X/DAY
     Route: 048
     Dates: start: 20171127
  16. CHLORPHENAMINE [Concomitant]
     Active Substance: CHLORPHENIRAMINE MALEATE
     Indication: PROPHYLAXIS
     Dosage: 14 MG, CYCLIC (D1 EACH CYCLE)
     Route: 048
     Dates: start: 20171128, end: 20171219

REACTIONS (1)
  - Infection [Recovered/Resolved]

NARRATIVE: CASE EVENT DATE: 20171229
